FAERS Safety Report 7534021-7 (Version None)
Quarter: 2011Q2

REPORT INFORMATION
  Report Type: 
  Country: None (occurrence: None)
  Receive Date: 20110608
  Receipt Date: 20060901
  Transmission Date: 20111010
  Serious: Yes (Death, Hospitalization)
  Sender: FDA-Public Use
  Company Number: PHEH2006US06964

PATIENT
  Sex: Male

DRUGS (17)
  1. EXJADE [Suspect]
     Indication: BLOOD IRON INCREASED
     Dosage: 2000 MG, QD
     Route: 048
     Dates: start: 20060503, end: 20060514
  2. TEMAZEPAM [Concomitant]
     Dosage: 15 MG, QD
  3. NITROSTAT [Concomitant]
     Dosage: UNK
  4. LORTAB [Concomitant]
     Dosage: 500 MG, PRN
  5. VITAMIN B-12 [Concomitant]
     Dosage: UNK
  6. OXYBUTYNIN [Concomitant]
     Dosage: 20 MG, QD
  7. GLIPIZIDE [Concomitant]
     Dosage: 15 MG, QD
  8. LASIX [Concomitant]
     Dosage: 160 MG, QD
  9. PROZAC [Concomitant]
     Dosage: 10 MG, QD
  10. FOLIC ACID [Concomitant]
     Dosage: UNK
  11. COREG [Concomitant]
     Dosage: UNK
  12. BACTRIM [Concomitant]
     Dosage: 2 MG, QD
  13. HYDROCODONE BITARTRATE [Concomitant]
     Dosage: 5 MG, PRN
  14. MAVIK [Concomitant]
     Dosage: 2 MG, QD
  15. PREDNISONE [Concomitant]
     Dosage: 20 MG, QD
  16. LYRICA [Concomitant]
     Dosage: 45 MG, QD
  17. ACTONEL [Concomitant]
     Dosage: 35 MG, QW

REACTIONS (1)
  - CARDIAC FAILURE CONGESTIVE [None]
